FAERS Safety Report 22939985 (Version 5)
Quarter: 2024Q1

REPORT INFORMATION
  Report Type: Spontaneous
  Country: NL (occurrence: NL)
  Receive Date: 20230913
  Receipt Date: 20240219
  Transmission Date: 20240410
  Serious: Yes (Hospitalization, Other)
  Sender: FDA-Public Use
  Company Number: NL-Accord-377340

PATIENT
  Age: 78 Year
  Sex: Male
  Weight: 94 kg

DRUGS (22)
  1. GEMCITABINE [Suspect]
     Active Substance: GEMCITABINE
     Indication: Diffuse large B-cell lymphoma stage IV
     Dosage: DOSE: C1D1 - C2D1
     Route: 042
     Dates: start: 20221031, end: 20221202
  2. OXALIPLATIN [Suspect]
     Active Substance: OXALIPLATIN
     Indication: Diffuse large B-cell lymphoma stage IV
     Dosage: C1D1 - C2D1
     Route: 042
     Dates: start: 20221031, end: 20221202
  3. EPCORITAMAB [Suspect]
     Active Substance: EPCORITAMAB
     Indication: Diffuse large B-cell lymphoma stage IV
     Dosage: C1D1
     Route: 058
     Dates: start: 20221031, end: 20221031
  4. VERAPAMIL [Concomitant]
     Active Substance: VERAPAMIL HYDROCHLORIDE
     Dates: start: 20220929
  5. RIVAROXABAN [Concomitant]
     Active Substance: RIVAROXABAN
     Dates: start: 20220929
  6. DIGOXIN [Concomitant]
     Active Substance: DIGOXIN
     Dates: start: 20220929
  7. MOVICOLON [Concomitant]
     Active Substance: POLYETHYLENE GLYCOL 3350\POTASSIUM CHLORIDE\SODIUM BICARBONATE\SODIUM CHLORIDE
     Dates: start: 20221028
  8. METFORMIN [Concomitant]
     Active Substance: METFORMIN HYDROCHLORIDE
     Dates: start: 20220929
  9. SIMVASTATIN [Concomitant]
     Active Substance: SIMVASTATIN
     Dates: start: 20221205
  10. AMOXICILLIN [Concomitant]
     Active Substance: AMOXICILLIN
     Dates: start: 20230713, end: 20230901
  11. PREDNISOLONE [Concomitant]
     Active Substance: PREDNISOLONE
     Dates: start: 20230802, end: 20230809
  12. MORPHINE [Concomitant]
     Active Substance: MORPHINE
     Dates: start: 20230816, end: 20230901
  13. FILGRASTIM [Concomitant]
     Active Substance: FILGRASTIM
     Dates: start: 20230816, end: 20230822
  14. INSULIN GLARGINE [Concomitant]
     Active Substance: INSULIN GLARGINE
     Dates: start: 20230819
  15. INSULIN ASPART [Concomitant]
     Active Substance: INSULIN ASPART
     Dates: start: 20230818
  16. MELATONIN [Concomitant]
     Active Substance: MELATONIN
     Dates: start: 20230828, end: 20230829
  17. TRAZODONE [Concomitant]
     Active Substance: TRAZODONE HYDROCHLORIDE
     Dates: start: 20230830
  18. TAMSULOSIN [Concomitant]
     Active Substance: TAMSULOSIN
     Dates: start: 20230825, end: 20230826
  19. CALCIUM CARBONATE [Concomitant]
     Active Substance: CALCIUM CARBONATE
     Dates: start: 20230831
  20. EPCORITAMAB [Suspect]
     Active Substance: EPCORITAMAB
     Indication: Diffuse large B-cell lymphoma stage IV
     Dosage: C1D8
     Route: 058
     Dates: start: 20221107, end: 20221107
  21. EPCORITAMAB [Suspect]
     Active Substance: EPCORITAMAB
     Indication: Diffuse large B-cell lymphoma stage IV
     Dosage: C1D15 - C3D22
     Route: 058
     Dates: start: 20221114, end: 20230206
  22. EPCORITAMAB [Suspect]
     Active Substance: EPCORITAMAB
     Indication: Diffuse large B-cell lymphoma stage IV
     Dosage: C4D1 - C9D1
     Route: 058
     Dates: start: 20230213, end: 20230802

REACTIONS (1)
  - Pneumonia [Recovered/Resolved]

NARRATIVE: CASE EVENT DATE: 20230810
